FAERS Safety Report 4331339-6 (Version None)
Quarter: 2004Q1

REPORT INFORMATION
  Report Type: 
  Country: None (occurrence: None)
  Receive Date: 20040331
  Receipt Date: 20040318
  Transmission Date: 20041129
  Serious: Yes (Hospitalization)
  Sender: FDA-Public Use
  Company Number: 2004018523

PATIENT
  Age: 62 Year
  Sex: Female
  Weight: 62.9 kg

DRUGS (1)
  1. LIPITOR [Suspect]
     Indication: TYPE IIA HYPERLIPIDAEMIA
     Dosage: 40 MG (DAILY), ORAL
     Route: 048

REACTIONS (1)
  - OCULAR MYASTHENIA [None]
